FAERS Safety Report 9196769 (Version 2)
Quarter: 2013Q3

REPORT INFORMATION
  Report Type: Spontaneous
  Country: US (occurrence: US)
  Receive Date: 20130328
  Receipt Date: 20130927
  Transmission Date: 20140515
  Serious: Yes (Other)
  Sender: FDA-Public Use
  Company Number: US-JNJFOC-20130314731

PATIENT
  Age: 56 Year
  Sex: Female
  Weight: 63.5 kg

DRUGS (14)
  1. STELARA [Suspect]
     Indication: PSORIASIS
     Route: 058
     Dates: start: 201004
  2. TRAMADOL [Concomitant]
     Indication: NEUROMA
     Route: 048
  3. TRAMADOL [Concomitant]
     Indication: OSTEOARTHRITIS
     Route: 048
  4. TRAMADOL [Concomitant]
     Indication: INTERVERTEBRAL DISC PROTRUSION
     Route: 048
  5. DALMANE [Concomitant]
     Indication: DEPRESSION
     Route: 048
  6. DALMANE [Concomitant]
     Indication: SLEEP DISORDER
     Route: 048
  7. TRANXENE [Concomitant]
     Indication: ANXIETY
     Route: 048
  8. TRANXENE [Concomitant]
     Indication: PANIC ATTACK
     Route: 048
  9. LIPITOR [Concomitant]
     Indication: BLOOD CHOLESTEROL
     Route: 048
  10. WELLBUTRIN [Concomitant]
     Indication: DEPRESSION
     Route: 048
  11. MELOXICAM [Concomitant]
     Indication: NEUROMA
     Route: 048
  12. MELOXICAM [Concomitant]
     Indication: OSTEOARTHRITIS
     Route: 048
  13. MELOXICAM [Concomitant]
     Indication: INTERVERTEBRAL DISC PROTRUSION
     Route: 048
  14. LIBRAX [Concomitant]
     Indication: INTERVERTEBRAL DISC PROTRUSION
     Route: 048

REACTIONS (2)
  - Influenza [Recovered/Resolved]
  - Drug prescribing error [Not Recovered/Not Resolved]
